FAERS Safety Report 5492975-7 (Version None)
Quarter: 2007Q4

REPORT INFORMATION
  Report Type: 
  Country: None (occurrence: None)
  Receive Date: 20071023
  Receipt Date: 20071019
  Transmission Date: 20080405
  Serious: Yes (Hospitalization)
  Sender: FDA-Public Use
  Company Number: US-BRISTOL-MYERS SQUIBB COMPANY-13948021

PATIENT
  Age: 48 Year
  Sex: Female

DRUGS (18)
  1. CARBOPLATIN [Suspect]
     Indication: NEOPLASM MALIGNANT
     Dosage: INITIAL DOSE 993MG
     Route: 042
     Dates: start: 20070927, end: 20070927
  2. ABRAXANE [Suspect]
     Indication: NEOPLASM MALIGNANT
     Dosage: INITIAL DOSE 150MG,REDUCED TO 64 MG/M2 AFTER EVENT AND RESTARTED ON 15-OCT-07 WITH 80MG/M2
     Route: 042
     Dates: start: 20070927, end: 20070927
  3. ADVAIR DISKUS 100/50 [Concomitant]
  4. ALBUTEROL [Concomitant]
  5. ALPRAZOLAM [Concomitant]
  6. ALREX [Concomitant]
  7. COLACE [Concomitant]
  8. COMPAZINE [Concomitant]
     Indication: NAUSEA
  9. COMPAZINE [Concomitant]
     Indication: VOMITING
  10. ESOMEPRAZOLE [Concomitant]
  11. NEUPOGEN [Concomitant]
  12. LESCOL XL [Concomitant]
  13. LORATADINE [Concomitant]
     Indication: HYPERSENSITIVITY
  14. METOCLOPRAMIDE [Concomitant]
  15. MONTELUKAST SODIUM [Concomitant]
  16. ONDANSETRON [Concomitant]
     Dosage: INITIAL DOSE 150MG
     Dates: start: 20070831
  17. LEVOFLOXACIN [Concomitant]
  18. METRONIDAZOLE [Concomitant]

REACTIONS (1)
  - FEBRILE NEUTROPENIA [None]
